FAERS Safety Report 16364310 (Version 5)
Quarter: 2021Q3

REPORT INFORMATION
  Report Type: Spontaneous
  Country: US (occurrence: US)
  Receive Date: 20190528
  Receipt Date: 20210730
  Transmission Date: 20211014
  Serious: Yes (Other)
  Sender: FDA-Public Use
  Company Number: US-GILEAD-2019-0409395

PATIENT
  Age: 52 Year
  Sex: Male

DRUGS (42)
  1. AZELASTINE. [Concomitant]
     Active Substance: AZELASTINE HYDROCHLORIDE
  2. LORATADINE. [Concomitant]
     Active Substance: LORATADINE
  3. NORTRIPTYLINE [Concomitant]
     Active Substance: NORTRIPTYLINE
  4. PATADAY [Concomitant]
     Active Substance: OLOPATADINE HYDROCHLORIDE
  5. PENICILLIN G POTASSIUM. [Concomitant]
     Active Substance: PENICILLIN G POTASSIUM
  6. BENZATHINE BENZYLP [Concomitant]
  7. COMPLERA [Suspect]
     Active Substance: EMTRICITABINE\RILPIVIRINE HYDROCHLORIDE\TENOFOVIR DISOPROXIL FUMARATE
     Indication: HIV INFECTION
     Dosage: 1 DOSAGE FORM, QD
     Route: 048
     Dates: start: 201402, end: 201610
  8. SERTRALINE [Concomitant]
     Active Substance: SERTRALINE HYDROCHLORIDE
  9. PREDNISONE. [Concomitant]
     Active Substance: PREDNISONE
  10. TRAMADOL. [Concomitant]
     Active Substance: TRAMADOL
  11. HYDROCODONE/ACETAMINOPHEN [Concomitant]
     Active Substance: ACETAMINOPHEN\HYDROCODONE
  12. DOXYCYCLINE MONOHYDRATE [Concomitant]
     Active Substance: DOXYCYCLINE
  13. AMITRIPTYLINE [Concomitant]
     Active Substance: AMITRIPTYLINE
  14. CYCLOBENZAPRINE. [Concomitant]
     Active Substance: CYCLOBENZAPRINE
  15. QVAR [Concomitant]
     Active Substance: BECLOMETHASONE DIPROPIONATE
  16. SULFAMETHOXAZOLE AND TRIMETHOPRIM [Concomitant]
     Active Substance: SULFAMETHOXAZOLE\TRIMETHOPRIM
  17. TRAZODONE [Concomitant]
     Active Substance: TRAZODONE HYDROCHLORIDE
  18. ENBREL [Concomitant]
     Active Substance: ETANERCEPT
  19. NASONEX [Concomitant]
     Active Substance: MOMETASONE FUROATE
  20. MONTELUKAST [Concomitant]
     Active Substance: MONTELUKAST SODIUM
  21. CETIRIZINE [Concomitant]
     Active Substance: CETIRIZINE HYDROCHLORIDE
  22. TAMIFLU [Concomitant]
     Active Substance: OSELTAMIVIR PHOSPHATE
  23. PIROXICAM. [Concomitant]
     Active Substance: PIROXICAM
  24. KETOCONAZOLE. [Concomitant]
     Active Substance: KETOCONAZOLE
  25. HYDROCORTISONE. [Concomitant]
     Active Substance: HYDROCORTISONE
  26. TOPIRAMATE. [Concomitant]
     Active Substance: TOPIRAMATE
  27. SULFASALAZINE. [Concomitant]
     Active Substance: SULFASALAZINE
  28. TRIAMCINOLONE [Concomitant]
     Active Substance: TRIAMCINOLONE
  29. FLUTICASONE. [Concomitant]
     Active Substance: FLUTICASONE
  30. ATRIPLA [Suspect]
     Active Substance: EFAVIRENZ\EMTRICITABINE\TENOFOVIR DISOPROXIL FUMARATE
     Indication: HIV INFECTION
     Dosage: 1 DOSAGE FORM, QD
     Route: 048
     Dates: start: 201202, end: 201401
  31. NAPROXEN. [Concomitant]
     Active Substance: NAPROXEN
  32. MELOXICAM. [Concomitant]
     Active Substance: MELOXICAM
  33. CELECOXIB. [Concomitant]
     Active Substance: CELECOXIB
  34. LEVOFLOXACIN. [Concomitant]
     Active Substance: LEVOFLOXACIN
  35. CLOBETASOL [Concomitant]
     Active Substance: CLOBETASOL
  36. GUAIFENESIN. [Concomitant]
     Active Substance: GUAIFENESIN
  37. ODEFSEY [Concomitant]
     Active Substance: EMTRICITABINE\RILPIVIRINE HYDROCHLORIDE\TENOFOVIR ALAFENAMIDE FUMARATE
  38. LISINOPRIL/HCTZ [Concomitant]
     Active Substance: HYDROCHLOROTHIAZIDE\LISINOPRIL
  39. ARIPIPRAZOLE. [Concomitant]
     Active Substance: ARIPIPRAZOLE
  40. AZITHROMYCIN ANHYDROUS. [Concomitant]
     Active Substance: AZITHROMYCIN ANHYDROUS
  41. OSELTAMIVIR [Concomitant]
     Active Substance: OSELTAMIVIR
  42. VENTOLIN HFA [Concomitant]
     Active Substance: ALBUTEROL SULFATE

REACTIONS (8)
  - Necrosis [Not Recovered/Not Resolved]
  - Anxiety [Not Recovered/Not Resolved]
  - Emotional distress [Not Recovered/Not Resolved]
  - Pain [Not Recovered/Not Resolved]
  - Economic problem [Not Recovered/Not Resolved]
  - Chronic kidney disease [Not Recovered/Not Resolved]
  - Anhedonia [Not Recovered/Not Resolved]
  - Bone density decreased [Not Recovered/Not Resolved]

NARRATIVE: CASE EVENT DATE: 20180504
